FAERS Safety Report 8491528-6 (Version None)
Quarter: 2012Q2

REPORT INFORMATION
  Report Type: 
  Country: None (occurrence: None)
  Receive Date: 20120402
  Receipt Date: 20100113
  Transmission Date: 20120825
  Serious: Yes (Other)
  Sender: FDA-Public Use
  Company Number: PHHY2010US02036

PATIENT
  Sex: Female

DRUGS (4)
  1. MILK THISTLE [Concomitant]
  2. EXFORGE [Suspect]
     Dosage: 325/12.5 MG
  3. VITAMIN D [Concomitant]
  4. FISH OIL (FISH OIL) [Concomitant]

REACTIONS (2)
  - CHEST PAIN [None]
  - ASTHENIA [None]
